FAERS Safety Report 18689200 (Version 1)
Quarter: 2020Q4

REPORT INFORMATION
  Report Type: Spontaneous
  Country: SE (occurrence: SE)
  Receive Date: 20201231
  Receipt Date: 20201231
  Transmission Date: 20210114
  Serious: Yes (Other)
  Sender: FDA-Public Use
  Company Number: NVSC2020SE306450

PATIENT
  Age: 65 Year
  Sex: Female

DRUGS (9)
  1. 5-FLUOROURACIL [Concomitant]
     Active Substance: FLUOROURACIL
     Indication: PANCREATIC NEUROENDOCRINE TUMOUR METASTATIC
     Dosage: UNK
     Route: 065
  2. OCTREOTIDE. [Suspect]
     Active Substance: OCTREOTIDE
     Indication: PANCREATIC NEUROENDOCRINE TUMOUR METASTATIC
     Dosage: 100 UG, BID
     Route: 058
     Dates: start: 2018
  3. PASIREOTIDE. [Suspect]
     Active Substance: PASIREOTIDE
     Indication: PANCREATIC NEUROENDOCRINE TUMOUR METASTATIC
     Dosage: UNK
     Route: 065
  4. STREPTOZOTOCIN [Concomitant]
     Active Substance: STREPTOZOCIN
     Indication: PANCREATIC NEUROENDOCRINE TUMOUR METASTATIC
     Dosage: UNK
     Route: 065
  5. EVEROLIMUS. [Suspect]
     Active Substance: EVEROLIMUS
     Indication: PANCREATIC NEUROENDOCRINE TUMOUR METASTATIC
     Dosage: UNK
     Route: 065
  6. OCTREOTIDE. [Suspect]
     Active Substance: OCTREOTIDE
  7. OCTREOTIDE. [Suspect]
     Active Substance: OCTREOTIDE
  8. GLUCOSE [Suspect]
     Active Substance: DEXTROSE
     Indication: PANCREATIC NEUROENDOCRINE TUMOUR METASTATIC
     Dosage: UNK
     Route: 042
     Dates: start: 2018
  9. LANREOTIDE [Concomitant]
     Active Substance: LANREOTIDE
     Indication: PANCREATIC NEUROENDOCRINE TUMOUR METASTATIC
     Dosage: 120 MG, Q4W (ANALOG TREATMENT)
     Route: 065

REACTIONS (3)
  - Weight decreased [Unknown]
  - Drug ineffective [Unknown]
  - Diabetes mellitus [Recovered/Resolved]
